FAERS Safety Report 4510717-6 (Version None)
Quarter: 2004Q4

REPORT INFORMATION
  Report Type: 
  Country: None (occurrence: None)
  Receive Date: 20041122
  Receipt Date: 20041109
  Transmission Date: 20050328
  Serious: Yes (Other)
  Sender: FDA-Public Use
  Company Number: 2004230705NL

PATIENT
  Age: 80 Year
  Sex: Female

DRUGS (2)
  1. PEGVISOMANT(PEGVISOMANT) [Suspect]
     Indication: ACROMEGALY
  2. OCTREOTIDE ACETATE [Concomitant]

REACTIONS (3)
  - NEOPLASM PROGRESSION [None]
  - PITUITARY ENLARGEMENT [None]
  - PITUITARY HAEMORRHAGE [None]
